FAERS Safety Report 9823254 (Version 1)
Quarter: 2014Q1

REPORT INFORMATION
  Report Type: Spontaneous
  Country: US (occurrence: US)
  Receive Date: 20140116
  Receipt Date: 20140116
  Transmission Date: 20141002
  Serious: Yes (Other)
  Sender: FDA-Public Use
  Company Number: US-NAPPMUNDI-USA-2013-0109724

PATIENT
  Age: 37 Year
  Sex: Female

DRUGS (1)
  1. DILAUDID INJECTION [Suspect]
     Indication: PRODUCT USED FOR UNKNOWN INDICATION
     Dosage: 10 IV PUSHES AT 0.4 MG EACH

REACTIONS (11)
  - Overdose [Unknown]
  - Incorrect drug administration rate [Unknown]
  - Respiratory rate decreased [Unknown]
  - Cyanosis [Unknown]
  - Drooling [Unknown]
  - Hot flush [Unknown]
  - Fatigue [Unknown]
  - Somnolence [Unknown]
  - Miosis [Unknown]
  - Balance disorder [Unknown]
  - Nausea [Unknown]
